FAERS Safety Report 23065800 (Version 2)
Quarter: 2023Q4

REPORT INFORMATION
  Report Type: Report from Study
  Country: US (occurrence: US)
  Receive Date: 20231014
  Receipt Date: 20231017
  Transmission Date: 20240110
  Serious: No
  Sender: FDA-Public Use
  Company Number: US-002147023-NVSC2023US218167

PATIENT
  Sex: Female
  Weight: 89.36 kg

DRUGS (1)
  1. TRIAMCINOLONE [Suspect]
     Active Substance: TRIAMCINOLONE
     Indication: Psoriasis
     Dosage: UNK
     Route: 065

REACTIONS (6)
  - Rash [Unknown]
  - Pruritus [Unknown]
  - Pain [Unknown]
  - Erythema [Unknown]
  - Arthralgia [Unknown]
  - Drug ineffective [Unknown]
